FAERS Safety Report 9546596 (Version 1)
Quarter: 2013Q3

REPORT INFORMATION
  Report Type: Spontaneous
  Country: US (occurrence: US)
  Receive Date: 20130924
  Receipt Date: 20130924
  Transmission Date: 20140515
  Serious: Yes (Other)
  Sender: FDA-Public Use
  Company Number: US-AMGEN-USASP2013066463

PATIENT
  Age: 45 Year
  Sex: Female

DRUGS (1)
  1. PROCRIT [Suspect]
     Indication: PRODUCT USED FOR UNKNOWN INDICATION
     Dosage: 40000 UNIT, QWK
     Route: 058
     Dates: start: 201307

REACTIONS (3)
  - Expired drug administered [Recovered/Resolved]
  - Rash pruritic [Recovering/Resolving]
  - Erythema [Recovering/Resolving]
